FAERS Safety Report 14398807 (Version 1)
Quarter: 2018Q1

REPORT INFORMATION
  Report Type: Spontaneous
  Country: SE (occurrence: SE)
  Receive Date: 20180117
  Receipt Date: 20180117
  Transmission Date: 20180509
  Serious: Yes (Hospitalization)
  Sender: FDA-Public Use
  Company Number: SE-ABBVIE-18P-150-2223600-00

PATIENT
  Age: 25 Year
  Sex: Female

DRUGS (1)
  1. ERGENYL RETARD [Suspect]
     Active Substance: VALPROIC ACID
     Indication: BIPOLAR I DISORDER
     Dosage: 1 IN THE MORNING AND 1 IN THE EVENING
     Route: 048
     Dates: end: 201712

REACTIONS (3)
  - Malaise [Recovered/Resolved]
  - Vomiting [Recovered/Resolved]
  - Dehydration [Recovered/Resolved]

NARRATIVE: CASE EVENT DATE: 2017
